FAERS Safety Report 18379853 (Version 2)
Quarter: 2020Q4

REPORT INFORMATION
  Report Type: Spontaneous
  Country: US (occurrence: US)
  Receive Date: 20201013
  Receipt Date: 20201016
  Transmission Date: 20210114
  Serious: No
  Sender: FDA-Public Use
  Company Number: US-PFIZER INC-2019100812

PATIENT
  Age: 74 Year
  Sex: Female
  Weight: 78.46 kg

DRUGS (6)
  1. PREMARIN [Suspect]
     Active Substance: ESTROGENS, CONJUGATED
     Indication: VULVOVAGINAL PRURITUS
     Dosage: 0.5 G, 2X/WEEK
     Route: 067
  2. PREMARIN [Suspect]
     Active Substance: ESTROGENS, CONJUGATED
     Indication: VULVOVAGINAL DRYNESS
     Dosage: UNK, (PLACE 0.5 APPLICATORFULS (1 G TOTAL) (3 TIMES A WEEK)
     Route: 067
  3. PREMARIN [Suspect]
     Active Substance: ESTROGENS, CONJUGATED
     Indication: URINARY TRACT INFECTION
     Dosage: 0.5 G, (THREE TIMES A WEEK)
     Route: 067
     Dates: start: 20190313
  4. PREMARIN [Suspect]
     Active Substance: ESTROGENS, CONJUGATED
     Indication: VAGINAL INFECTION
     Dosage: UNK
  5. PREMARIN [Suspect]
     Active Substance: ESTROGENS, CONJUGATED
     Indication: ATROPHIC VULVOVAGINITIS
     Dosage: 1 G, (0.5 APPLICATORFULS (1G TOTAL) VAGINALLY 3 TIMES A WEEK)
     Route: 067
     Dates: start: 20200221
  6. PREMARIN [Suspect]
     Active Substance: ESTROGENS, CONJUGATED
     Dosage: 1 G, (0.5 APPLICATORFULS (1G TOTAL) VAGINALLY 3 TIMES A WEEK WED, THURS, FRI))
     Route: 067
     Dates: start: 20200408

REACTIONS (7)
  - Off label use [Unknown]
  - Pharyngitis streptococcal [Recovered/Resolved]
  - Oropharyngeal pain [Recovering/Resolving]
  - Tonsillar disorder [Unknown]
  - Depression [Not Recovered/Not Resolved]
  - Fatigue [Unknown]
  - Product use issue [Unknown]

NARRATIVE: CASE EVENT DATE: 2020
